FAERS Safety Report 8090747-0 (Version None)
Quarter: 2012Q1

REPORT INFORMATION
  Report Type: 
  Country: None (occurrence: None)
  Receive Date: 20120124
  Receipt Date: 20120117
  Transmission Date: 20120608
  Serious: Yes (Other)
  Sender: FDA-Public Use
  Company Number: AUR-APL-2012-00597

PATIENT
  Age: 70 Year
  Sex: Female
  Weight: 73.47 kg

DRUGS (4)
  1. RAMIPRIL [Suspect]
     Indication: PRODUCT USED FOR UNKNOWN INDICATION
  2. BENICAR [Suspect]
     Indication: PRODUCT USED FOR UNKNOWN INDICATION
  3. ALTACE [Suspect]
     Indication: PRODUCT USED FOR UNKNOWN INDICATION
  4. NORVASC [Suspect]
     Indication: PRODUCT USED FOR UNKNOWN INDICATION

REACTIONS (6)
  - NERVOUSNESS [None]
  - MIDDLE INSOMNIA [None]
  - INSOMNIA [None]
  - ANXIETY [None]
  - DRUG INEFFECTIVE [None]
  - UNEVALUABLE EVENT [None]
